FAERS Safety Report 13424620 (Version 2)
Quarter: 2018Q1

REPORT INFORMATION
  Report Type: Report from Study
  Country: CA (occurrence: CA)
  Receive Date: 20170410
  Receipt Date: 20180111
  Transmission Date: 20180508
  Serious: Yes (Death)
  Sender: FDA-Public Use
  Company Number: CA-HLSUS-2017-CA-000301

PATIENT
  Age: 60 Year
  Sex: Female
  Weight: 81 kg

DRUGS (11)
  1. ASPIRIN. [Concomitant]
     Active Substance: ASPIRIN
     Dosage: 81 MG 1  EVERY 1 DAY
     Route: 048
  2. ARIPIPRAZOLE. [Concomitant]
     Active Substance: ARIPIPRAZOLE
     Dosage: 15 MG  1 EVERY 1 DAY
  3. ATORVASTATIN [Concomitant]
     Active Substance: ATORVASTATIN
     Dosage: 40 MG 1  EVERY 1 DAY
     Route: 048
  4. METFORMIN [Concomitant]
     Active Substance: METFORMIN HYDROCHLORIDE
     Dosage: 500 MG 2 EVERY 1 DAY
     Route: 048
  5. PANTOPRAZOLE [Concomitant]
     Active Substance: PANTOPRAZOLE
     Dosage: 40 MG 1 EVERY 1 DAY
     Route: 048
  6. CLOZAPINE. [Suspect]
     Active Substance: CLOZAPINE
     Indication: PRODUCT USED FOR UNKNOWN INDICATION
     Dosage: 350 MG 1  EVERY 1 DAY
  7. SPIRIVA [Concomitant]
     Active Substance: TIOTROPIUM BROMIDE MONOHYDRATE
     Dosage: 1  EVERY 1 DAY
  8. VALPROATE SEMISODIUM [Concomitant]
     Active Substance: DIVALPROEX SODIUM
     Dosage: 500 MG 2  EVERY 1 DAY
     Route: 048
  9. FUROSEMIDE. [Concomitant]
     Active Substance: FUROSEMIDE
     Dosage: 40 MG 1 EVERY 1 DAY
     Route: 048
  10. ADVAIR HFA [Concomitant]
     Active Substance: FLUTICASONE PROPIONATE\SALMETEROL XINAFOATE
     Dosage: 2  EVERY 1 DAY
     Route: 048
  11. IPRATROPIUM BROMIDE/SALBUTAMOL SULFATE [Concomitant]
     Active Substance: ALBUTEROL SULFATE\IPRATROPIUM BROMIDE
     Dosage: 1 DOSAGE FORM 2 EVERY 1 DAY
     Route: 048

REACTIONS (2)
  - Granulocytopenia [Unknown]
  - Coronary artery embolism [Fatal]
